FAERS Safety Report 25085543 (Version 5)
Quarter: 2025Q2

REPORT INFORMATION
  Report Type: Spontaneous
  Country: JP (occurrence: JP)
  Receive Date: 20250317
  Receipt Date: 20250625
  Transmission Date: 20250717
  Serious: Yes (Hospitalization, Other)
  Sender: UCB
  Company Number: JP-UCBJ-CD202503221UCBPHAPROD

PATIENT
  Age: 6 Decade
  Sex: Male
  Weight: 55.9 kg

DRUGS (13)
  1. CIMZIA [Suspect]
     Active Substance: CERTOLIZUMAB PEGOL
     Indication: Psoriatic arthropathy
     Dosage: 400 MILLIGRAM, EV 2 WEEKS(QOW)
     Route: 058
     Dates: start: 20250124, end: 20250206
  2. CIMZIA [Suspect]
     Active Substance: CERTOLIZUMAB PEGOL
     Indication: Psoriasis
  3. CIMZIA [Suspect]
     Active Substance: CERTOLIZUMAB PEGOL
     Indication: Erythrodermic psoriasis
  4. ETRETINATE [Suspect]
     Active Substance: ETRETINATE
     Indication: Psoriasis
     Route: 048
     Dates: start: 20210114, end: 20250206
  5. CELECOXIB [Suspect]
     Active Substance: CELECOXIB
     Indication: Arthralgia
     Dosage: 100 MILLIGRAM, 2X/DAY (BID)
     Route: 048
     Dates: start: 20250115, end: 20250129
  6. KEFLEX [Suspect]
     Active Substance: CEPHALEXIN
     Indication: Cellulitis
     Route: 048
  7. KEFLEX [Suspect]
     Active Substance: CEPHALEXIN
     Route: 048
     Dates: start: 20250107, end: 20250206
  8. AMLODIPINE [Concomitant]
     Active Substance: AMLODIPINE BESYLATE
     Indication: Product used for unknown indication
     Dates: start: 20250225
  9. ASPIRIN [Concomitant]
     Active Substance: ASPIRIN
     Indication: Product used for unknown indication
     Dosage: 100 MILLIGRAM, ONCE DAILY (QD)
     Route: 048
     Dates: start: 20250225
  10. ACETAMINOPHEN [Concomitant]
     Active Substance: ACETAMINOPHEN
     Indication: Arthralgia
     Route: 048
     Dates: start: 20210107
  11. CEFAZOLIN SODIUM [Concomitant]
     Active Substance: CEFAZOLIN SODIUM
     Indication: Cellulitis
     Dosage: 1 GRAM, ONCE DAILY (QD)
     Route: 041
     Dates: start: 20240115, end: 20250117
  12. CEFAZOLIN SODIUM [Concomitant]
     Active Substance: CEFAZOLIN SODIUM
     Dosage: 1 GRAM, ONCE DAILY (QD)
     Route: 041
     Dates: start: 20241114, end: 20241118
  13. AMLODIPINE [Concomitant]
     Active Substance: AMLODIPINE BESYLATE
     Indication: Hypertension
     Route: 048
     Dates: start: 20250225

REACTIONS (3)
  - Anti-neutrophil cytoplasmic antibody positive vasculitis [Recovered/Resolved]
  - Renal impairment [Recovered/Resolved]
  - Pustular psoriasis [Not Recovered/Not Resolved]

NARRATIVE: CASE EVENT DATE: 20250213
